FAERS Safety Report 5677173-6 (Version None)
Quarter: 2008Q1

REPORT INFORMATION
  Report Type: 
  Country: None (occurrence: None)
  Receive Date: 20080324
  Receipt Date: 20080318
  Transmission Date: 20080703
  Serious: Yes (Death)
  Sender: FDA-Public Use
  Company Number: B0511997A

PATIENT
  Age: 63 Year
  Sex: Male

DRUGS (4)
  1. PAXIL [Suspect]
     Dosage: 20MG PER DAY
     Route: 048
     Dates: start: 20080219, end: 20080301
  2. WYPAX [Concomitant]
     Indication: NEUROSIS
     Dosage: 1.5MG PER DAY
     Route: 048
     Dates: start: 20080219
  3. LEVOTOMIN [Concomitant]
     Dosage: 5MG PER DAY
     Route: 048
     Dates: start: 20080219
  4. MYSLEE [Concomitant]
     Indication: INSOMNIA
     Dosage: 10MG PER DAY
     Route: 048
     Dates: start: 20080219

REACTIONS (1)
  - COMPLETED SUICIDE [None]
